FAERS Safety Report 16853986 (Version 1)
Quarter: 2019Q3

REPORT INFORMATION
  Report Type: Report from Study
  Country: CN (occurrence: CN)
  Receive Date: 20190926
  Receipt Date: 20190926
  Transmission Date: 20191005
  Serious: Yes (Other)
  Sender: FDA-Public Use
  Company Number: CN-ROCHE-2409191

PATIENT
  Age: 29 Year
  Sex: Male

DRUGS (13)
  1. CYCLOPHOSPHAMIDE. [Concomitant]
     Active Substance: CYCLOPHOSPHAMIDE
  2. MYCOPHENOLATE MOFETIL. [Suspect]
     Active Substance: MYCOPHENOLATE MOFETIL
     Indication: PROPHYLAXIS AGAINST GRAFT VERSUS HOST DISEASE
     Route: 065
  3. METHOTREXATE. [Concomitant]
     Active Substance: METHOTREXATE
     Indication: PROPHYLAXIS AGAINST GRAFT VERSUS HOST DISEASE
  4. CYTARABINE. [Concomitant]
     Active Substance: CYTARABINE
     Dosage: 7 DAYS IN TOTAL
     Route: 065
  5. CYCLOSPORIN A [Concomitant]
     Active Substance: CYCLOSPORINE
     Indication: PROPHYLAXIS AGAINST GRAFT VERSUS HOST DISEASE
  6. DECITABINE. [Concomitant]
     Active Substance: DECITABINE
     Dosage: 6MG/M2 PER DAY, 3 DAYS IN TOTAL
     Route: 065
  7. FLUDARABINE [Concomitant]
     Active Substance: FLUDARABINE PHOSPHATE
  8. GRANULOCYTE COLONY STIMULATING FACTOR [Concomitant]
     Active Substance: GRANULOCYTE COLONY-STIMULATING FACTOR NOS
  9. BUSULFAN. [Concomitant]
     Active Substance: BUSULFAN
  10. DASATINIB. [Concomitant]
     Active Substance: DASATINIB
     Route: 048
  11. CYTARABINE. [Concomitant]
     Active Substance: CYTARABINE
     Dosage: 2G/M2 , TWICE EVERY OTHER DAY, 6 TIMES IN TOTAL
     Route: 065
  12. MITOXANTRONE [Concomitant]
     Active Substance: MITOXANTRONE HYDROCHLORIDE
     Dosage: ON DAY 1, 3 DAYS IN TOTAL
     Route: 065
  13. DECITABINE. [Concomitant]
     Active Substance: DECITABINE
     Dosage: 6MG/M2 PER DAY,  5 DAYS IN TOTAL
     Route: 065

REACTIONS (3)
  - Intentional product use issue [Unknown]
  - Off label use [Unknown]
  - Cystitis haemorrhagic [Recovering/Resolving]
